FAERS Safety Report 14180808 (Version 3)
Quarter: 2019Q1

REPORT INFORMATION
  Report Type: Spontaneous
  Country: US (occurrence: US)
  Receive Date: 20171110
  Receipt Date: 20190104
  Transmission Date: 20190417
  Serious: Yes (Hospitalization)
  Sender: FDA-Public Use
  Company Number: US-ACTELION-A-NJ2017-162065

PATIENT
  Age: 48 Year
  Sex: Female

DRUGS (1)
  1. OPSUMIT [Suspect]
     Active Substance: MACITENTAN
     Indication: PULMONARY ARTERIAL HYPERTENSION
     Dosage: 10 MG, QD
     Route: 048
     Dates: start: 20150519

REACTIONS (9)
  - Fatigue [Unknown]
  - Wheezing [Unknown]
  - Respiration abnormal [Unknown]
  - Swelling [Not Recovered/Not Resolved]
  - Myocardial infarction [Recovered/Resolved]
  - Nasopharyngitis [Unknown]
  - Productive cough [Unknown]
  - Product dose omission [Unknown]
  - Dyspepsia [Not Recovered/Not Resolved]

NARRATIVE: CASE EVENT DATE: 20170830
